FAERS Safety Report 15890197 (Version 2)
Quarter: 2020Q1

REPORT INFORMATION
  Report Type: Spontaneous
  Country: US (occurrence: US)
  Receive Date: 20190130
  Receipt Date: 20200127
  Transmission Date: 20200409
  Serious: No
  Sender: FDA-Public Use
  Company Number: US-ABBVIE-18S-163-2554614-00

PATIENT

DRUGS (1)
  1. LUPRON DEPOT [Suspect]
     Active Substance: LEUPROLIDE ACETATE
     Indication: PRODUCT USED FOR UNKNOWN INDICATION
     Route: 065

REACTIONS (7)
  - Feeling abnormal [Unknown]
  - Pain [Unknown]
  - Somnolence [Unknown]
  - Anxiety [Unknown]
  - Depression [Unknown]
  - Fatigue [Unknown]
  - Disturbance in attention [Unknown]
